APPROVED DRUG PRODUCT: CORTISPORIN
Active Ingredient: HYDROCORTISONE ACETATE; NEOMYCIN SULFATE; POLYMYXIN B SULFATE
Strength: 0.5%;EQ 3.5MG BASE/GM;10,000 UNITS/GM **Federal Register determination that product was not discontinued or withdrawn for safety or effectiveness reasons**
Dosage Form/Route: CREAM;TOPICAL
Application: N050218 | Product #001
Applicant: MONARCH PHARMACEUTICALS LLC
Approved: Aug 9, 1985 | RLD: Yes | RS: No | Type: DISCN